FAERS Safety Report 15775214 (Version 2)
Quarter: 2019Q1

REPORT INFORMATION
  Report Type: Report from Study
  Country: DE (occurrence: DE)
  Receive Date: 20181231
  Receipt Date: 20190108
  Transmission Date: 20190417
  Serious: Yes (Hospitalization, Other)
  Sender: FDA-Public Use
  Company Number: DE-ACCORD-098512

PATIENT
  Sex: Male
  Weight: 96 kg

DRUGS (3)
  1. XGEVA [Suspect]
     Active Substance: DENOSUMAB
     Indication: PROSTATE CANCER METASTATIC
     Dosage: DAILY DOSE: 120 MG MILLIGRAM(S) EVERY MONTH
     Route: 058
     Dates: start: 20170509
  2. LUTRATE [Suspect]
     Active Substance: LEUPROLIDE ACETATE
     Indication: PROSTATE CANCER
     Dosage: DAILY DOSE: 22.5 MG MILLIGRAM(S) EVERY 3 MONTH
     Route: 058
     Dates: start: 20170509
  3. DOCETAXEL. [Suspect]
     Active Substance: DOCETAXEL
     Indication: HORMONE-REFRACTORY PROSTATE CANCER
     Dosage: 75 MG/KG,
     Route: 042

REACTIONS (2)
  - Wound infection staphylococcal [Recovered/Resolved]
  - Intentional product use issue [Unknown]

NARRATIVE: CASE EVENT DATE: 20170518
